FAERS Safety Report 4842828-X (Version None)
Quarter: 2005Q4

REPORT INFORMATION
  Report Type: 
  Country: None (occurrence: None)
  Receive Date: 20051129
  Receipt Date: 20051118
  Transmission Date: 20060501
  Serious: Yes (Hospitalization)
  Sender: FDA-Public Use
  Company Number: DE-2005-022796

PATIENT
  Age: 44 Year
  Sex: Female
  Weight: 72 kg

DRUGS (2)
  1. MIRENA [Suspect]
     Indication: CONTRACEPTION
     Dosage: 20 UG/DAY, CONT, INTRA-UTERINE
     Route: 015
     Dates: start: 20030101
  2. CIPROFLOXACIN [Suspect]
     Indication: URINARY TRACT INFECTION
     Dosage: 2 X 250 MG
     Dates: start: 20051008, end: 20051008

REACTIONS (9)
  - ABDOMINAL PAIN UPPER [None]
  - ALANINE AMINOTRANSFERASE INCREASED [None]
  - ASPARTATE AMINOTRANSFERASE INCREASED [None]
  - CHOLANGITIS SCLEROSING [None]
  - CHROMATURIA [None]
  - GAMMA-GLUTAMYLTRANSFERASE INCREASED [None]
  - HEPATOMEGALY [None]
  - JAUNDICE [None]
  - LIVER TENDERNESS [None]
